FAERS Safety Report 7903051-5 (Version None)
Quarter: 2011Q4

REPORT INFORMATION
  Report Type: 
  Country: None (occurrence: None)
  Receive Date: 20111104
  Receipt Date: 20111024
  Transmission Date: 20120403
  Serious: Yes (Other)
  Sender: FDA-Public Use
  Company Number: 2011SP050244

PATIENT
  Sex: Female

DRUGS (2)
  1. PEG-INTRON [Suspect]
     Indication: HEPATITIS C
     Dosage: QW
     Dates: start: 20040716, end: 20050617
  2. RIBAVIRIN [Suspect]
     Indication: HEPATITIS C

REACTIONS (5)
  - CHRONIC OBSTRUCTIVE PULMONARY DISEASE [None]
  - OCULAR ICTERUS [None]
  - YELLOW SKIN [None]
  - WEIGHT DECREASED [None]
  - FEAR [None]
